FAERS Safety Report 7502711-8 (Version None)
Quarter: 2011Q2

REPORT INFORMATION
  Report Type: 
  Country: None (occurrence: None)
  Receive Date: 20110525
  Receipt Date: 20110519
  Transmission Date: 20111010
  Serious: Yes (Other)
  Sender: FDA-Public Use
  Company Number: PHHO2011DE06304

PATIENT
  Sex: Male
  Weight: 120 kg

DRUGS (5)
  1. FUROSEMIDE [Concomitant]
  2. ASPIRIN [Concomitant]
  3. PRAVASTATIN [Concomitant]
  4. BETA BLOCKING AGENTS [Concomitant]
  5. TASIGNA [Suspect]
     Indication: CHRONIC MYELOID LEUKAEMIA
     Dosage: 300 MG, BID
     Route: 048
     Dates: start: 20101029, end: 20110331

REACTIONS (1)
  - ELECTROCARDIOGRAM QT PROLONGED [None]
